FAERS Safety Report 6482674-7 (Version None)
Quarter: 2009Q4

REPORT INFORMATION
  Report Type: 
  Country: None (occurrence: None)
  Receive Date: 20091209
  Receipt Date: 20091201
  Transmission Date: 20100525
  Serious: Yes (Other)
  Sender: FDA-Public Use
  Company Number: US-BAYER-200937817NA

PATIENT
  Age: 27 Year
  Sex: Female
  Weight: 104 kg

DRUGS (2)
  1. MIRENA [Suspect]
     Indication: CONTRACEPTION
     Dosage: CONTINUOUS
     Route: 015
     Dates: start: 20091019, end: 20091019
  2. MIRENA [Suspect]
     Route: 015
     Dates: start: 20091019

REACTIONS (1)
  - DEVICE DISLOCATION [None]
